FAERS Safety Report 18679046 (Version 1)
Quarter: 2020Q4

REPORT INFORMATION
  Report Type: Spontaneous
  Country: US (occurrence: US)
  Receive Date: 20201229
  Receipt Date: 20201229
  Transmission Date: 20210114
  Serious: Yes (Other)
  Sender: FDA-Public Use
  Company Number: US-BAYER-2020-284076

PATIENT
  Age: 51 Year
  Sex: Male

DRUGS (2)
  1. MIFEPRISTONE [Concomitant]
     Active Substance: MIFEPRISTONE
     Dosage: 200 MG
     Route: 048
  2. REGORAFENIB. [Suspect]
     Active Substance: REGORAFENIB
     Indication: OSTEOSARCOMA METASTATIC

REACTIONS (7)
  - General physical health deterioration [None]
  - Pain in extremity [None]
  - Osteosarcoma [None]
  - Somnolence [None]
  - Product use in unapproved indication [None]
  - Off label use [None]
  - Neuropathy peripheral [None]
